FAERS Safety Report 6462745-1 (Version None)
Quarter: 2009Q4

REPORT INFORMATION
  Report Type: 
  Country: None (occurrence: None)
  Receive Date: 20091130
  Receipt Date: 20091119
  Transmission Date: 20100525
  Serious: Yes (Hospitalization)
  Sender: FDA-Public Use
  Company Number: ES-SANOFI-AVENTIS-2009SA003297

PATIENT
  Age: 73 Year
  Sex: Male

DRUGS (2)
  1. SEGURIL [Suspect]
     Indication: RENAL FAILURE CHRONIC
     Route: 048
     Dates: start: 20080101, end: 20090212
  2. GOPTEN [Interacting]
     Route: 048
     Dates: start: 20080101, end: 20090202

REACTIONS (2)
  - DRUG INTERACTION [None]
  - RENAL FAILURE ACUTE [None]
